FAERS Safety Report 6032814-9 (Version None)
Quarter: 2009Q1

REPORT INFORMATION
  Report Type: 
  Country: None (occurrence: None)
  Receive Date: 20090109
  Receipt Date: 20090107
  Transmission Date: 20090719
  Serious: Yes (Other)
  Sender: FDA-Public Use
  Company Number: US-ASTRAZENECA-2009UW00468

PATIENT
  Age: 59 Year
  Sex: Female
  Weight: 62.1 kg

DRUGS (4)
  1. CRESTOR [Suspect]
     Route: 048
     Dates: end: 20080730
  2. HUMIRA [Suspect]
     Indication: ENTERITIS
     Dosage: 40 MG/0.8 ML PRE-FILLED SYRINGE, DAY 15
     Route: 058
     Dates: start: 20080701, end: 20080701
  3. HUMIRA [Suspect]
     Dosage: 40 MG/0.8 ML PRE-FILLED SYRINGE, DAY 15
     Route: 058
     Dates: start: 20080715, end: 20080715
  4. EZETIMIBE [Suspect]
     Dates: end: 20080730

REACTIONS (12)
  - CONTUSION [None]
  - DIZZINESS [None]
  - FALL [None]
  - HEADACHE [None]
  - MUSCULAR WEAKNESS [None]
  - NAUSEA [None]
  - OEDEMA PERIPHERAL [None]
  - PYREXIA [None]
  - TREMOR [None]
  - VISION BLURRED [None]
  - VOMITING [None]
  - WEIGHT DECREASED [None]
